FAERS Safety Report 7799598-5 (Version None)
Quarter: 2011Q4

REPORT INFORMATION
  Report Type: 
  Country: None (occurrence: None)
  Receive Date: 20111006
  Receipt Date: 20110922
  Transmission Date: 20120403
  Serious: Yes (Other)
  Sender: FDA-Public Use
  Company Number: US-ENDO PHARMACEUTICALS INC.-OPIR20110060

PATIENT
  Sex: 0

DRUGS (1)
  1. OPANA [Suspect]
     Indication: DRUG DIVERSION
     Dosage: 10 MG

REACTIONS (1)
  - DRUG DIVERSION [None]
